FAERS Safety Report 19955094 (Version 2)
Quarter: 2021Q4

REPORT INFORMATION
  Report Type: Spontaneous
  Country: FR (occurrence: FR)
  Receive Date: 20211013
  Receipt Date: 20211018
  Transmission Date: 20220304
  Serious: Yes (Other)
  Sender: FDA-Public Use
  Company Number: FR-ORGANON-O2109FRA001050

PATIENT
  Age: 51 Year
  Sex: Female
  Weight: 86 kg

DRUGS (2)
  1. NEXPLANON [Suspect]
     Active Substance: ETONOGESTREL
     Dosage: 1 IMPLANT, LEFT ARM (RIGHT-HANDED PATIENT)
     Dates: start: 20180911, end: 20210910
  2. NEXPLANON [Suspect]
     Active Substance: ETONOGESTREL
     Dosage: 1 IMPLANT IN LEFT ARM
     Dates: start: 20210910

REACTIONS (10)
  - Type 2 diabetes mellitus [Unknown]
  - Impaired healing [Unknown]
  - Skin weeping [Recovered/Resolved]
  - Implant site pruritus [Unknown]
  - Implant site scar [Unknown]
  - Implant site fibrosis [Unknown]
  - Implant site erythema [Recovered/Resolved]
  - Implant site pain [Unknown]
  - Device breakage [Recovered/Resolved]
  - Device placement issue [Not Recovered/Not Resolved]

NARRATIVE: CASE EVENT DATE: 20180101
